FAERS Safety Report 5472151-4 (Version None)
Quarter: 2007Q3

REPORT INFORMATION
  Report Type: 
  Country: None (occurrence: None)
  Receive Date: 20070928
  Receipt Date: 20070921
  Transmission Date: 20080115
  Serious: Yes (Congenital Anomaly, Other)
  Sender: FDA-Public Use
  Company Number: US-ABBOTT-07P-163-0418040-00

PATIENT
  Sex: Female
  Weight: 63.6 kg

DRUGS (11)
  1. HUMIRA [Suspect]
     Indication: PSORIATIC ARTHROPATHY
     Route: 050
  2. VITAMIN CAP [Concomitant]
     Indication: DRUG USE FOR UNKNOWN INDICATION
     Route: 048
  3. LEVOTHYROXINE SODIUM [Concomitant]
     Indication: DRUG USE FOR UNKNOWN INDICATION
     Route: 048
     Dates: start: 19900101
  4. MORPHINE SULFATE [Concomitant]
     Indication: MIGRAINE
     Route: 048
  5. NASAL SPRAY/DROPS [Concomitant]
     Indication: DRUG USE FOR UNKNOWN INDICATION
     Route: 055
     Dates: start: 20070625, end: 20070626
  6. THOMAPYRIN N [Concomitant]
     Indication: DRUG USE FOR UNKNOWN INDICATION
     Route: 048
     Dates: start: 20070619, end: 20070620
  7. TOPIRAMATE [Concomitant]
     Indication: DRUG USE FOR UNKNOWN INDICATION
     Route: 048
     Dates: end: 20070705
  8. TOPIRAMATE [Concomitant]
     Route: 048
     Dates: end: 20070705
  9. LORTAB [Concomitant]
     Indication: MIGRAINE
     Route: 048
  10. SUMATRIPTAN SUCCINATE [Concomitant]
     Indication: MIGRAINE
     Route: 048
  11. TUMS [Concomitant]
     Indication: DYSPEPSIA
     Route: 048

REACTIONS (3)
  - ABORTION SPONTANEOUS [None]
  - NASOPHARYNGITIS [None]
  - ROAD TRAFFIC ACCIDENT [None]
